FAERS Safety Report 8057427-9 (Version None)
Quarter: 2012Q1

REPORT INFORMATION
  Report Type: 
  Country: None (occurrence: None)
  Receive Date: 20120119
  Receipt Date: 20120110
  Transmission Date: 20120608
  Serious: Yes (Hospitalization)
  Sender: FDA-Public Use
  Company Number: US-ROCHE-1029397

PATIENT
  Sex: Female

DRUGS (8)
  1. KLONOPIN [Suspect]
     Indication: PRODUCT USED FOR UNKNOWN INDICATION
     Route: 048
  2. XANAX [Suspect]
     Indication: PRODUCT USED FOR UNKNOWN INDICATION
     Route: 048
  3. VALIUM [Suspect]
     Indication: PRODUCT USED FOR UNKNOWN INDICATION
     Route: 048
  4. VOLTAREN [Suspect]
     Indication: PRODUCT USED FOR UNKNOWN INDICATION
  5. SUBOXONE [Suspect]
     Indication: PRODUCT USED FOR UNKNOWN INDICATION
  6. OXYCODONE HCL [Suspect]
     Indication: PAIN
  7. LORCET-HD [Suspect]
     Indication: BREAKTHROUGH PAIN
     Dosage: 10/650 MG
     Route: 048
  8. SOMA [Suspect]
     Indication: PRODUCT USED FOR UNKNOWN INDICATION

REACTIONS (13)
  - SINUSITIS [None]
  - HEPATIC ENZYME INCREASED [None]
  - WEIGHT INCREASED [None]
  - LIFE SUPPORT [None]
  - DYSARTHRIA [None]
  - DRUG ABUSE [None]
  - KIDNEY INFECTION [None]
  - CONVULSION [None]
  - FLUID OVERLOAD [None]
  - UNEVALUABLE EVENT [None]
  - RESPIRATORY TRACT HAEMORRHAGE [None]
  - FEELING DRUNK [None]
  - VASCULAR RUPTURE [None]
